FAERS Safety Report 20391279 (Version 1)
Quarter: 2022Q1

REPORT INFORMATION
  Report Type: Spontaneous
  Country: US (occurrence: US)
  Receive Date: 20220128
  Receipt Date: 20220128
  Transmission Date: 20220423
  Serious: Yes (Hospitalization)
  Sender: FDA-Public Use
  Company Number: US-RECORDATI-2022000129

PATIENT
  Age: 19 Year
  Sex: Male
  Weight: 53 kg

DRUGS (5)
  1. DACTINOMYCIN [Suspect]
     Active Substance: DACTINOMYCIN
     Indication: Alveolar rhabdomyosarcoma
     Dosage: 2.5 MILLIGRAM
     Route: 065
     Dates: start: 20180731, end: 20180912
  2. CYCLOPHOSPHAMIDE [Suspect]
     Active Substance: CYCLOPHOSPHAMIDE
     Indication: Alveolar rhabdomyosarcoma
     Dosage: 1848 MILLIGRAM
     Route: 065
     Dates: start: 20180731, end: 20180912
  3. VINCRISTINE SULFATE [Suspect]
     Active Substance: VINCRISTINE SULFATE
     Indication: Alveolar rhabdomyosarcoma
     Dosage: 6 MILLIGRAM
     Route: 065
     Dates: start: 20180731, end: 20180925
  4. IRINOTECAN [Suspect]
     Active Substance: IRINOTECAN
     Indication: Alveolar rhabdomyosarcoma
     Dosage: UNK
     Route: 065
     Dates: start: 20180822, end: 20180825
  5. TEMSIROLIMUS [Suspect]
     Active Substance: TEMSIROLIMUS
     Indication: Alveolar rhabdomyosarcoma
     Dosage: 30.8 MILLIGRAM
     Route: 065
     Dates: start: 20180731, end: 20180918

REACTIONS (1)
  - Large intestinal haemorrhage [Unknown]
